FAERS Safety Report 7255212-9 (Version None)
Quarter: 2011Q1

REPORT INFORMATION
  Report Type: 
  Country: None (occurrence: None)
  Receive Date: 20110129
  Receipt Date: 20100218
  Transmission Date: 20110831
  Serious: No
  Sender: FDA-Public Use
  Company Number: US-ABBOTT-10P-163-0628304-00

PATIENT
  Sex: Male
  Weight: 129.39 kg

DRUGS (3)
  1. HUMIRA [Suspect]
     Indication: CROHN'S DISEASE
     Route: 058
     Dates: start: 20091219
  2. ASACOL [Concomitant]
     Indication: CROHN'S DISEASE
  3. ENTECORT [Concomitant]
     Indication: CROHN'S DISEASE

REACTIONS (2)
  - INJECTION SITE DISCOLOURATION [None]
  - EPISTAXIS [None]
